FAERS Safety Report 19457922 (Version 1)
Quarter: 2021Q2

REPORT INFORMATION
  Report Type: Spontaneous
  Country: US (occurrence: US)
  Receive Date: 20210624
  Receipt Date: 20210624
  Transmission Date: 20210717
  Serious: No
  Sender: FDA-Public Use
  Company Number: US-DECIPHERA PHARMACEUTICALS LLC-2021US000370

PATIENT
  Sex: Male
  Weight: 65.31 kg

DRUGS (2)
  1. QINLOCK [Suspect]
     Active Substance: RIPRETINIB
     Dosage: 150 MILLIGRAM
     Route: 048
     Dates: start: 20210428
  2. QINLOCK [Suspect]
     Active Substance: RIPRETINIB
     Indication: NEOPLASM MALIGNANT
     Dosage: 150 MILLIGRAM, QD
     Route: 048

REACTIONS (4)
  - Weight increased [Unknown]
  - Rash [Unknown]
  - Pain [Unknown]
  - Renal disorder [Unknown]
